FAERS Safety Report 20557459 (Version 1)
Quarter: 2022Q1

REPORT INFORMATION
  Report Type: Spontaneous
  Country: US (occurrence: None)
  Receive Date: 20220307
  Receipt Date: 20220307
  Transmission Date: 20220423
  Serious: Yes (Other)
  Sender: FDA-Public Use
  Company Number: US-MICRO LABS LIMITED-ML2022-00704

PATIENT
  Age: 47 Year
  Sex: Female

DRUGS (2)
  1. ACETAZOLAMIDE [Suspect]
     Active Substance: ACETAZOLAMIDE
     Indication: Hypobarism
  2. ESTROGENS [Suspect]
     Active Substance: ESTROGENS
     Indication: Hormone therapy
     Dosage: LOW DOSE OF TRANSDERMAL ESTROGEN PATCH
     Route: 062

REACTIONS (1)
  - Ophthalmic vein thrombosis [Unknown]
